FAERS Safety Report 13789311 (Version 1)
Quarter: 2017Q3

REPORT INFORMATION
  Report Type: Spontaneous
  Country: US (occurrence: US)
  Receive Date: 20170725
  Receipt Date: 20170725
  Transmission Date: 20171127
  Serious: Yes (Hospitalization)
  Sender: FDA-Public Use
  Company Number: US-NOVOPROD-554634

PATIENT
  Sex: Male

DRUGS (4)
  1. NOVOLOG [Suspect]
     Active Substance: INSULIN ASPART
     Dosage: 25 U, QD
     Route: 058
     Dates: start: 201707
  2. NOVOLIN 70/30 [Suspect]
     Active Substance: INSULIN HUMAN
     Dosage: 50 U, QD
     Route: 058
     Dates: start: 201707
  3. NOVOLIN 70/30 [Suspect]
     Active Substance: INSULIN HUMAN
     Indication: PRODUCT USED FOR UNKNOWN INDICATION
     Dosage: 40 U, QD
     Route: 058
  4. NOVOLOG [Suspect]
     Active Substance: INSULIN ASPART
     Indication: PRODUCT USED FOR UNKNOWN INDICATION
     Dosage: 10 U, QD
     Route: 058

REACTIONS (2)
  - Blood glucose increased [Recovered/Resolved]
  - Fluid retention [Unknown]

NARRATIVE: CASE EVENT DATE: 20170702
